FAERS Safety Report 15718883 (Version 2)
Quarter: 2018Q4

REPORT INFORMATION
  Report Type: Spontaneous
  Country: FR (occurrence: FR)
  Receive Date: 20181213
  Receipt Date: 20181226
  Transmission Date: 20190205
  Serious: Yes (Death)
  Sender: FDA-Public Use
  Company Number: FR-MYLANLABS-2018M1092916

PATIENT
  Age: 31 Year
  Sex: Male
  Weight: 95 kg

DRUGS (29)
  1. IMIPENEM AND CILASTATIN [Suspect]
     Active Substance: CILASTATIN SODIUM\IMIPENEM
     Dosage: 1500 MILLIGRAM, QD
     Dates: start: 20180526, end: 20180607
  2. CUBICIN [Suspect]
     Active Substance: DAPTOMYCIN
     Indication: PROPHYLAXIS
     Dosage: 900 MILLIGRAM, QD
     Route: 042
     Dates: start: 20180529, end: 20180607
  3. FLUIMUCIL A [Concomitant]
  4. OMEPRAZOLE MYLAN 40 MG, POUDRE POUR SOLUTION POUR PERFUSION [Suspect]
     Active Substance: OMEPRAZOLE
     Indication: PRODUCT USED FOR UNKNOWN INDICATION
     Dosage: UNK
     Route: 042
     Dates: start: 20180524, end: 20180609
  5. NPLATE [Concomitant]
     Active Substance: ROMIPLOSTIM
  6. ONDANSETRON ACCORD [Suspect]
     Active Substance: ONDANSETRON
     Dosage: 8 MILLIGRAM, QD
     Route: 042
     Dates: start: 20180523, end: 20180606
  7. VANCOMYCINE SANDOZ [Suspect]
     Active Substance: VANCOMYCIN
     Indication: INFECTION
     Dosage: UNK
     Route: 042
     Dates: start: 20180518, end: 20180529
  8. AMBISOME [Suspect]
     Active Substance: AMPHOTERICIN B
     Indication: INFECTION
     Dosage: UNK
     Route: 042
     Dates: start: 20180518, end: 20180528
  9. METHYLPREDNISOLONE. [Concomitant]
     Active Substance: METHYLPREDNISOLONE
  10. ETOPOSIDE. [Suspect]
     Active Substance: ETOPOSIDE
     Indication: B-CELL LYMPHOMA
     Dosage: UNK
     Route: 042
     Dates: start: 20180524, end: 20180525
  11. METRONIDAZOLE. [Suspect]
     Active Substance: METRONIDAZOLE
     Indication: PROPHYLAXIS
     Dosage: 3 DOSAGE FORM, QD
     Route: 042
     Dates: start: 20180518, end: 20180607
  12. OXYCODONE                          /00045603/ [Concomitant]
     Active Substance: OXYCODONE
  13. EXACYL [Concomitant]
     Active Substance: TRANEXAMIC ACID
  14. MIDAZOLAM [Concomitant]
     Active Substance: MIDAZOLAM HYDROCHLORIDE
  15. ONDANSETRON ACCORD [Suspect]
     Active Substance: ONDANSETRON
     Indication: NAUSEA
     Dosage: UNK
     Route: 042
     Dates: start: 20180525, end: 20180529
  16. ARACYTINE [Suspect]
     Active Substance: CYTARABINE
     Indication: B-CELL LYMPHOMA
     Dosage: UNK
     Route: 042
     Dates: start: 20180524, end: 20180526
  17. VANCOMYCINE SANDOZ [Suspect]
     Active Substance: VANCOMYCIN
     Dosage: 500 MILLIGRAM, QD
     Dates: start: 20180518, end: 20180608
  18. HOLOXAN [Suspect]
     Active Substance: IFOSFAMIDE
     Indication: B-CELL LYMPHOMA
     Dosage: UNK
     Route: 042
     Dates: start: 20180524, end: 20180527
  19. IMIPENEM AND CILASTATIN [Suspect]
     Active Substance: CILASTATIN SODIUM\IMIPENEM
     Indication: INFECTION
     Dosage: UNK
     Route: 042
     Dates: start: 20180526, end: 20180608
  20. GRANOCYTE [Concomitant]
     Active Substance: LENOGRASTIM
  21. ETOPOSIDE. [Suspect]
     Active Substance: ETOPOSIDE
     Dosage: UNK
     Route: 042
     Dates: start: 20180524, end: 20180524
  22. LASILIX                            /00032601/ [Suspect]
     Active Substance: FUROSEMIDE
     Indication: PRODUCT USED FOR UNKNOWN INDICATION
     Dosage: UNK
     Route: 042
     Dates: start: 20180525, end: 20180605
  23. ZELITREX [Suspect]
     Active Substance: VALACYCLOVIR HYDROCHLORIDE
     Indication: INFECTION
     Dosage: UNK
     Route: 048
     Dates: start: 20180517, end: 20180604
  24. TRIMEBUTINE                        /00465202/ [Concomitant]
  25. ZOLEDRONIC ACID. [Concomitant]
     Active Substance: ZOLEDRONIC ACID
  26. MESNA EG [Suspect]
     Active Substance: MESNA
     Indication: PROPHYLAXIS
     Dosage: 2400 MILLIGRAM, QD
     Route: 042
     Dates: start: 20180523, end: 20180527
  27. HOLOXAN [Suspect]
     Active Substance: IFOSFAMIDE
     Dosage: UNK
     Dates: start: 20180525, end: 20180525
  28. SCOPOLAMINE                        /00008701/ [Concomitant]
     Active Substance: SCOPOLAMINE
  29. THIAMPHENICOL [Concomitant]
     Active Substance: THIAMPHENICOL

REACTIONS (3)
  - Osmotic demyelination syndrome [Fatal]
  - Hepatitis cholestatic [Fatal]
  - Acute kidney injury [Fatal]

NARRATIVE: CASE EVENT DATE: 20180527
